FAERS Safety Report 9430044 (Version 1)
Quarter: 2013Q3

REPORT INFORMATION
  Report Type: Spontaneous
  Country: None (occurrence: US)
  Receive Date: 20130730
  Receipt Date: 20130730
  Transmission Date: 20140515
  Serious: No
  Sender: FDA-Public Use
  Company Number: US-ABBOTT-13P-163-1075733-00

PATIENT
  Sex: Male
  Weight: 87.17 kg

DRUGS (11)
  1. NIASPAN (COATED) [Suspect]
     Indication: BLOOD CHOLESTEROL INCREASED
     Route: 048
     Dates: start: 2011
  2. NIASPAN (COATED) [Suspect]
     Indication: BLOOD CHOLESTEROL INCREASED
     Route: 048
     Dates: start: 201211
  3. METFORMIN [Concomitant]
     Indication: DIABETES MELLITUS
  4. LOTREL [Concomitant]
     Indication: HYPERTENSION
  5. HYDROCHLOROTHIAZIDE [Concomitant]
     Indication: HYPERTENSION
  6. GLIPIZIDE ER [Concomitant]
     Indication: DIABETES MELLITUS
  7. CYMBALTA [Concomitant]
     Indication: POST HERPETIC NEURALGIA
  8. SINGULAIR [Concomitant]
     Indication: HYPERSENSITIVITY
  9. VERAPAMIL [Concomitant]
     Indication: HYPERTENSION
  10. ZYRTEC [Concomitant]
     Indication: HYPERSENSITIVITY
  11. MUCINEX [Concomitant]
     Indication: HYPERSENSITIVITY

REACTIONS (11)
  - Pyrexia [Not Recovered/Not Resolved]
  - Upper respiratory tract infection [Recovered/Resolved]
  - Fatigue [Not Recovered/Not Resolved]
  - Chromaturia [Not Recovered/Not Resolved]
  - Chromaturia [Not Recovered/Not Resolved]
  - Pruritus [Not Recovered/Not Resolved]
  - Erythema [Not Recovered/Not Resolved]
  - Myalgia [Not Recovered/Not Resolved]
  - Myalgia [Not Recovered/Not Resolved]
  - Blood glucose increased [Not Recovered/Not Resolved]
  - Flushing [Not Recovered/Not Resolved]
